FAERS Safety Report 26089840 (Version 1)
Quarter: 2025Q4

REPORT INFORMATION
  Report Type: Spontaneous
  Country: CN (occurrence: CN)
  Receive Date: 20251125
  Receipt Date: 20251125
  Transmission Date: 20260117
  Serious: Yes (Hospitalization)
  Sender: HISUN PHARMACEUTICALS USA INC
  Company Number: CN-Hisun Pharmaceuticals USA Inc.-000875

PATIENT
  Age: 68 Year
  Sex: Female
  Weight: 80 kg

DRUGS (9)
  1. IRBESARTAN [Suspect]
     Active Substance: IRBESARTAN
     Indication: Hypertension
     Route: 048
     Dates: start: 20251105, end: 20251110
  2. NITROGLYCERIN [Concomitant]
     Active Substance: NITROGLYCERIN
     Indication: Angina pectoris
     Dates: start: 20251104, end: 20251104
  3. Yangxin Dawa Imesic Honey Ointment [Concomitant]
     Indication: Arteriosclerosis coronary artery
     Route: 048
     Dates: start: 20251104, end: 20251112
  4. SODIUM CHLORIDE [Concomitant]
     Active Substance: SODIUM CHLORIDE
     Indication: Productive cough
     Dates: start: 20251104
  5. AMBROXOL [Concomitant]
     Active Substance: AMBROXOL
     Indication: Productive cough
     Dates: start: 20251104
  6. BUDESONIDE [Concomitant]
     Active Substance: BUDESONIDE
     Indication: Inhalation therapy
     Dosage: SUSPENSION FOR INHALATION
     Dates: start: 20251104
  7. IPRATROPIUM BROMIDE [Concomitant]
     Active Substance: IPRATROPIUM BROMIDE
     Indication: Inhalation therapy
     Dosage: SOLUTION FOR INHALATION
     Dates: start: 20251104
  8. METHOXYPHENAMINE [Concomitant]
     Active Substance: METHOXYPHENAMINE
     Indication: Cough
     Dosage: 2 CAPSULES
     Dates: start: 20251104
  9. SODIUM CHLORIDE [Concomitant]
     Active Substance: SODIUM CHLORIDE
     Indication: Productive cough
     Dates: start: 20251104

REACTIONS (7)
  - Cough [Recovering/Resolving]
  - Productive cough [Recovering/Resolving]
  - Dyspnoea [Recovering/Resolving]
  - Palpitations [Recovering/Resolving]
  - Chest pain [Recovering/Resolving]
  - Abnormal precordial movement [Recovering/Resolving]
  - Drug ineffective [Unknown]

NARRATIVE: CASE EVENT DATE: 20251101
